FAERS Safety Report 7683644-3 (Version None)
Quarter: 2011Q3

REPORT INFORMATION
  Report Type: 
  Country: None (occurrence: None)
  Receive Date: 20110815
  Receipt Date: 20110802
  Transmission Date: 20111222
  Serious: Yes (Other)
  Sender: FDA-Public Use
  Company Number: DE-UCBSA-034793

PATIENT
  Sex: Female
  Weight: 82 kg

DRUGS (6)
  1. NEUPRO [Suspect]
     Indication: PARKINSON'S DISEASE
     Dosage: 4MG/24H
     Route: 062
     Dates: start: 20100501, end: 20100601
  2. ISICOM [Concomitant]
     Indication: PARKINSON'S DISEASE
     Dosage: 100MG; SINGLE DOSE: 25-50MG; DOSE PER INTAKE:4; DAILY DOSE:125MG
     Route: 048
     Dates: start: 20100101
  3. CABASERIL [Concomitant]
     Indication: PARKINSON'S DISEASE
     Route: 048
     Dates: start: 20040101
  4. PK MERZ [Concomitant]
     Indication: PARKINSON'S DISEASE
     Route: 048
     Dates: start: 20070101
  5. AZILECT [Concomitant]
     Indication: PARKINSON'S DISEASE
     Route: 048
     Dates: start: 20070101
  6. NEUPRO [Suspect]
     Dosage: 6MG/24H
     Route: 062
     Dates: start: 20100601, end: 20110401

REACTIONS (6)
  - APPLICATION SITE ERYTHEMA [None]
  - PRURITUS [None]
  - APPLICATION SITE IRRITATION [None]
  - ERYTHEMA [None]
  - APPLICATION SITE PRURITUS [None]
  - DRUG INEFFECTIVE [None]
